FAERS Safety Report 15627349 (Version 3)
Quarter: 2018Q4

REPORT INFORMATION
  Report Type: Spontaneous
  Country: DE (occurrence: DE)
  Receive Date: 20181116
  Receipt Date: 20181220
  Transmission Date: 20190205
  Serious: Yes (Life-Threatening, Hospitalization, Other)
  Sender: FDA-Public Use
  Company Number: DE-BEH-2018096880

PATIENT
  Age: 39 Year
  Sex: Female
  Weight: 59 kg

DRUGS (18)
  1. PRIVIGEN [Suspect]
     Active Substance: HUMAN IMMUNOGLOBULIN G
     Dosage: 5 G, UNK
     Route: 065
     Dates: start: 20181112, end: 20181112
  2. PRIVIGEN [Suspect]
     Active Substance: HUMAN IMMUNOGLOBULIN G
     Dosage: 5 G, UNK
     Route: 065
     Dates: start: 20150407, end: 20150407
  3. PRIVIGEN [Suspect]
     Active Substance: HUMAN IMMUNOGLOBULIN G
     Dosage: 5 G, UNK
     Route: 065
     Dates: start: 20150515, end: 20150515
  4. PRIVIGEN [Suspect]
     Active Substance: HUMAN IMMUNOGLOBULIN G
     Indication: PRODUCT USED FOR UNKNOWN INDICATION
     Dosage: 10 G, UNK
     Route: 065
     Dates: start: 20181112, end: 20181112
  5. PRIVIGEN [Suspect]
     Active Substance: HUMAN IMMUNOGLOBULIN G
     Dosage: 10 G, UNK
     Route: 065
     Dates: start: 20150407, end: 20150407
  6. PRIVIGEN [Suspect]
     Active Substance: HUMAN IMMUNOGLOBULIN G
     Dosage: 5 G, UNK
     Route: 065
     Dates: start: 20150626, end: 20150626
  7. PRIVIGEN [Suspect]
     Active Substance: HUMAN IMMUNOGLOBULIN G
     Dosage: 5 G, UNK
     Route: 065
     Dates: start: 20170821, end: 20170821
  8. PRIVIGEN [Suspect]
     Active Substance: HUMAN IMMUNOGLOBULIN G
     Dosage: 5 G, UNK
     Route: 065
     Dates: start: 20170821, end: 20170821
  9. UTROGEST [Concomitant]
     Active Substance: PROGESTERONE
     Dosage: 600 MG, QD
     Route: 067
  10. CLEXANE [Concomitant]
     Active Substance: ENOXAPARIN SODIUM
     Dosage: 40 MG, QD
     Route: 065
  11. PRIVIGEN [Suspect]
     Active Substance: HUMAN IMMUNOGLOBULIN G
     Dosage: 5 G, UNK
     Route: 065
     Dates: start: 20150807, end: 20150807
  12. PRIVIGEN [Suspect]
     Active Substance: HUMAN IMMUNOGLOBULIN G
     Dosage: 10 G, UNK
     Route: 065
     Dates: start: 20140901, end: 20140901
  13. PRIVIGEN [Suspect]
     Active Substance: HUMAN IMMUNOGLOBULIN G
     Dosage: 5 G, UNK
     Route: 065
     Dates: start: 20150424, end: 20150424
  14. PRIVIGEN [Suspect]
     Active Substance: HUMAN IMMUNOGLOBULIN G
     Dosage: 5 G, UNK
     Route: 065
     Dates: start: 20150717, end: 20150717
  15. PRIVIGEN [Suspect]
     Active Substance: HUMAN IMMUNOGLOBULIN G
     Dosage: 5 G, UNK
     Route: 065
     Dates: start: 20150828, end: 20150828
  16. PRIVIGEN [Suspect]
     Active Substance: HUMAN IMMUNOGLOBULIN G
     Indication: INFERTILITY FEMALE
     Dosage: 15 G, TOT
     Route: 065
     Dates: start: 20181112, end: 20181112
  17. PRIVIGEN [Suspect]
     Active Substance: HUMAN IMMUNOGLOBULIN G
     Dosage: 5 G, UNK
     Route: 065
     Dates: start: 20140901, end: 20140901
  18. PRIVIGEN [Suspect]
     Active Substance: HUMAN IMMUNOGLOBULIN G
     Dosage: 5 G, UNK
     Route: 065
     Dates: start: 20150605, end: 20150605

REACTIONS (9)
  - Anaphylactic reaction [Recovered/Resolved]
  - Nausea [Recovered/Resolved]
  - Tachycardia [Recovered/Resolved]
  - Pyrexia [Recovered/Resolved]
  - Vertigo [Recovered/Resolved]
  - Erythema [Recovered/Resolved]
  - Dyspnoea [Recovered/Resolved]
  - Chills [Recovered/Resolved]
  - Body temperature increased [Recovered/Resolved]

NARRATIVE: CASE EVENT DATE: 20181112
